FAERS Safety Report 6686946-2 (Version None)
Quarter: 2010Q2

REPORT INFORMATION
  Report Type: 
  Country: None (occurrence: None)
  Receive Date: 20100416
  Receipt Date: 20100416
  Transmission Date: 20101027
  Serious: No
  Sender: FDA-Public Use
  Company Number: None

PATIENT
  Sex: Female
  Weight: 64.8644 kg

DRUGS (2)
  1. COMBIPATCH [Suspect]
     Indication: HOT FLUSH
     Dosage: .05/.14 ONE PATCH TWICE WEEKLY TRANSDERMAL
     Route: 062
     Dates: start: 20100320, end: 20100321
  2. COMBIPATCH [Suspect]
     Indication: MENOPAUSAL SYMPTOMS
     Dosage: .05/.14 ONE PATCH TWICE WEEKLY TRANSDERMAL
     Route: 062
     Dates: start: 20100320, end: 20100321

REACTIONS (4)
  - CONFUSIONAL STATE [None]
  - DIZZINESS [None]
  - EMOTIONAL DISORDER [None]
  - IRRITABILITY [None]
